FAERS Safety Report 9393806 (Version 2)
Quarter: 2013Q4

REPORT INFORMATION
  Report Type: Spontaneous
  Country: DE (occurrence: DE)
  Receive Date: 20130710
  Receipt Date: 20131003
  Transmission Date: 20140711
  Serious: Yes (Hospitalization, Disabling, Congenital Anomaly)
  Sender: FDA-Public Use
  Company Number: DE-TEVA-417164GER

PATIENT
  Sex: Male
  Weight: 1.28 kg

DRUGS (5)
  1. CITALOPRAM [Suspect]
     Route: 064
  2. KATADOLON KAPSELN [Suspect]
     Route: 064
  3. TILIDIN [Concomitant]
     Route: 064
  4. PANTOPRAZOL [Concomitant]
     Route: 064
  5. DIAZEPAM [Concomitant]
     Route: 064

REACTIONS (4)
  - Congenital hydrocephalus [Not Recovered/Not Resolved]
  - Limb reduction defect [Not Recovered/Not Resolved]
  - Pulmonary hypertension [Not Recovered/Not Resolved]
  - Foetal exposure timing unspecified [Not Recovered/Not Resolved]
